FAERS Safety Report 8428356-3 (Version None)
Quarter: 2012Q2

REPORT INFORMATION
  Report Type: 
  Country: None (occurrence: None)
  Receive Date: 20120612
  Receipt Date: 20120606
  Transmission Date: 20120825
  Serious: Yes (Hospitalization, Other)
  Sender: FDA-Public Use
  Company Number: US-AMGEN-USASP2012035598

PATIENT
  Sex: Female

DRUGS (3)
  1. ETOPOSIDE [Concomitant]
  2. NEULASTA [Suspect]
     Indication: NEUTROPENIA
  3. CISPLATIN [Concomitant]

REACTIONS (2)
  - DRUG INEFFECTIVE [None]
  - FEBRILE NEUTROPENIA [None]
